FAERS Safety Report 4737313-X (Version None)
Quarter: 2005Q3

REPORT INFORMATION
  Report Type: 
  Country: None (occurrence: None)
  Receive Date: 20050808
  Receipt Date: 20050804
  Transmission Date: 20060218
  Serious: Yes (Death)
  Sender: FDA-Public Use
  Company Number: PHBS2005JP11317

PATIENT
  Age: 74 Year
  Sex: Male

DRUGS (2)
  1. METHYLPREDNISOLONE 16MG TAB [Suspect]
     Indication: IDIOPATHIC THROMBOCYTOPENIC PURPURA
  2. CYCLOSPORINE [Suspect]
     Indication: IDIOPATHIC THROMBOCYTOPENIC PURPURA
     Route: 065

REACTIONS (7)
  - ANAL ULCER [None]
  - BLISTER [None]
  - CYTOMEGALOVIRUS VIRAEMIA [None]
  - DRUG INEFFECTIVE [None]
  - GASTROINTESTINAL ULCER [None]
  - HERPES SIMPLEX [None]
  - MULTI-ORGAN FAILURE [None]
